FAERS Safety Report 9206294 (Version 1)
Quarter: 2013Q2

REPORT INFORMATION
  Report Type: Report from Study
  Country: US (occurrence: US)
  Receive Date: 20130403
  Receipt Date: 20130403
  Transmission Date: 20140414
  Serious: No
  Sender: FDA-Public Use
  Company Number: US-VERTEX PHARMACEUTICALS INC.-2013-004294

PATIENT
  Age: 58 Year
  Sex: Male
  Weight: 104 kg

DRUGS (8)
  1. VX-950 (TELAPREVIR) [Suspect]
     Indication: HEPATITIS C
     Dosage: 750 MG, TID
  2. PEGASYS [Suspect]
     Indication: HEPATITIS C
     Dosage: UNK
  3. RIBAVIRIN [Suspect]
     Indication: HEPATITIS C
  4. MULTIVITAMIN [Concomitant]
  5. MAGNESIUM [Concomitant]
  6. ASPIRIN [Concomitant]
  7. CARVEDILOL [Concomitant]
  8. OMEPRAZOLE [Concomitant]

REACTIONS (6)
  - Injection site pain [Unknown]
  - Injection site erythema [Unknown]
  - Fatigue [Unknown]
  - Rash macular [Recovered/Resolved]
  - Rash erythematous [Recovered/Resolved]
  - Anorectal discomfort [Unknown]
